FAERS Safety Report 13417719 (Version 3)
Quarter: 2017Q4

REPORT INFORMATION
  Report Type: Spontaneous
  Country: ES (occurrence: ES)
  Receive Date: 20170407
  Receipt Date: 20171212
  Transmission Date: 20180320
  Serious: Yes (Death)
  Sender: FDA-Public Use
  Company Number: ES-UNITED THERAPEUTICS-UNT-2017-004998

PATIENT
  Age: 4 Year
  Sex: Male

DRUGS (3)
  1. ACETYLSALICYLIC ACID [Suspect]
     Active Substance: ASPIRIN
     Indication: DOWLING-DEGOS DISEASE
     Dosage: 100 MG, QD
     Route: 065
  2. ECULIZUMAB [Suspect]
     Active Substance: ECULIZUMAB
     Indication: SKIN LESION
     Dosage: 300 MG, UNK
     Route: 065
  3. REMODULIN [Suspect]
     Active Substance: TREPROSTINIL
     Indication: SKIN LESION
     Dosage: UNK
     Route: 058

REACTIONS (3)
  - Drug ineffective for unapproved indication [Unknown]
  - Dowling-Degos disease [Fatal]
  - Product use in unapproved indication [Unknown]
